FAERS Safety Report 8131093-6 (Version None)
Quarter: 2012Q1

REPORT INFORMATION
  Report Type: 
  Country: None (occurrence: None)
  Receive Date: 20120207
  Receipt Date: 20120202
  Transmission Date: 20120608
  Serious: Yes (Hospitalization, Disabling)
  Sender: FDA-Public Use
  Company Number: 2010SP063654

PATIENT
  Age: 36 Year
  Sex: Female
  Weight: 61.2356 kg

DRUGS (7)
  1. NUVARING [Suspect]
     Indication: FUNGAL INFECTION
     Dates: start: 20040520
  2. NUVARING [Suspect]
     Indication: DYSMENORRHOEA
     Dates: start: 20040520
  3. NUVARING [Suspect]
     Indication: VAGINITIS BACTERIAL
     Dates: start: 20040520
  4. NUVARING [Suspect]
     Indication: FUNGAL INFECTION
     Dates: start: 20080825, end: 20081201
  5. NUVARING [Suspect]
     Indication: DYSMENORRHOEA
     Dates: start: 20080825, end: 20081201
  6. NUVARING [Suspect]
     Indication: VAGINITIS BACTERIAL
     Dates: start: 20080825, end: 20081201
  7. LEXAPRO [Suspect]

REACTIONS (49)
  - VERTIGO [None]
  - OEDEMA PERIPHERAL [None]
  - DRY EYE [None]
  - LOSS OF LIBIDO [None]
  - LYMPHADENOPATHY [None]
  - OVARIAN CYST [None]
  - THROMBOSIS [None]
  - CEREBRAL HAEMORRHAGE [None]
  - LYMPHOEDEMA [None]
  - PARAESTHESIA [None]
  - MEMORY IMPAIRMENT [None]
  - HYPERHIDROSIS [None]
  - DYSGEUSIA [None]
  - DIPLOPIA [None]
  - MALAISE [None]
  - INSOMNIA [None]
  - URINARY TRACT INFECTION [None]
  - RESTLESS LEGS SYNDROME [None]
  - SNORING [None]
  - POLLAKIURIA [None]
  - JOINT SWELLING [None]
  - WEIGHT INCREASED [None]
  - HOT FLUSH [None]
  - INFLAMMATION [None]
  - PAIN IN EXTREMITY [None]
  - CONSTIPATION [None]
  - ANGER [None]
  - HYPERCOAGULATION [None]
  - IRRITABLE BOWEL SYNDROME [None]
  - FIBROMYALGIA [None]
  - ABDOMINAL DISTENSION [None]
  - NIGHTMARE [None]
  - ONYCHOCLASIS [None]
  - INFLUENZA LIKE ILLNESS [None]
  - CEREBELLAR HAEMORRHAGE [None]
  - INFECTIOUS MONONUCLEOSIS [None]
  - NECK PAIN [None]
  - BRUXISM [None]
  - TINNITUS [None]
  - DEPRESSION [None]
  - FATIGUE [None]
  - MYALGIA [None]
  - MIGRAINE [None]
  - SINUSITIS [None]
  - SYSTEMIC LUPUS ERYTHEMATOSUS [None]
  - FLATULENCE [None]
  - PULMONARY EMBOLISM [None]
  - MULTIPLE INJURIES [None]
  - EXTRASKELETAL OSSIFICATION [None]
